FAERS Safety Report 5082184-8 (Version None)
Quarter: 2006Q3

REPORT INFORMATION
  Report Type: 
  Country: None (occurrence: None)
  Receive Date: 20060815
  Receipt Date: 20060815
  Transmission Date: 20061208
  Serious: Yes (Other)
  Sender: FDA-Public Use
  Company Number: None

PATIENT
  Age: 77 Year
  Sex: Male
  Weight: 71.6683 kg

DRUGS (5)
  1. GLYBURIDE [Suspect]
     Indication: DIABETES MELLITUS
     Dosage: 2 TABLETS BY MOUTH 3 TIMES A DAY
     Route: 048
     Dates: start: 20060701
  2. HYDROCHLOROTHLAZIDE [Concomitant]
  3. DIGITEK [Concomitant]
  4. ATENOLOL [Concomitant]
  5. MAVIK [Concomitant]

REACTIONS (2)
  - DRUG INEFFECTIVE [None]
  - THERAPEUTIC RESPONSE UNEXPECTED WITH DRUG SUBSTITUTION [None]
